FAERS Safety Report 8448836-4 (Version None)
Quarter: 2012Q2

REPORT INFORMATION
  Report Type: 
  Country: None (occurrence: None)
  Receive Date: 20120613
  Receipt Date: 20120607
  Transmission Date: 20120825
  Serious: Yes (Hospitalization, Other)
  Sender: FDA-Public Use
  Company Number: AUR-APL-2012-02568

PATIENT
  Age: 76 Year
  Sex: Male

DRUGS (5)
  1. SILDENAFIL CITRATE [Concomitant]
  2. GLUCOSAMINE (GLUCOSAMINE) [Concomitant]
  3. DICLOFENAC SODIUM [Suspect]
     Indication: OSTEOARTHRITIS
     Dosage: ORAL
     Route: 048
  4. CINNARIZINE (CINNARIZINE) [Concomitant]
  5. SIMVASTATIN [Suspect]
     Indication: HYPERCHOLESTEROLAEMIA
     Dosage: ORAL
     Route: 048

REACTIONS (2)
  - RHABDOMYOLYSIS [None]
  - RENAL FAILURE ACUTE [None]
